FAERS Safety Report 18172988 (Version 1)
Quarter: 2020Q3

REPORT INFORMATION
  Report Type: Spontaneous
  Country: JP (occurrence: JP)
  Receive Date: 20200819
  Receipt Date: 20200819
  Transmission Date: 20201103
  Serious: Yes (Other)
  Sender: FDA-Public Use
  Company Number: JP-PFIZER INC-2020319718

PATIENT

DRUGS (1)
  1. CELECOXIB 100MG PFIZER [Suspect]
     Active Substance: CELECOXIB
     Route: 048

REACTIONS (1)
  - Arrhythmia [Unknown]
